FAERS Safety Report 8837928 (Version 1)
Quarter: 2012Q4

REPORT INFORMATION
  Report Type: 
  Country: US (occurrence: US)
  Receive Date: 20121012
  Receipt Date: 20121012
  Transmission Date: 20130627
  Serious: Yes (Hospitalization, Other)
  Sender: FDA-Public Use
  Company Number: US-ROCHE-1137064

PATIENT
  Age: 74 Year
  Sex: Male

DRUGS (1)
  1. RITUXAN [Suspect]
     Indication: CHRONIC LYMPHOCYTIC LEUKAEMIA
     Route: 065

REACTIONS (12)
  - Pyrexia [Unknown]
  - Pancytopenia [Unknown]
  - Thrombocytopenia [Unknown]
  - Epistaxis [Unknown]
  - Rectal haemorrhage [Unknown]
  - Pleural effusion [Unknown]
  - Fatigue [Unknown]
  - Restlessness [Unknown]
  - Injection site reaction [Unknown]
  - Dyspnoea exertional [Unknown]
  - Asthenia [Unknown]
  - Chills [Unknown]
